FAERS Safety Report 5631152-3 (Version None)
Quarter: 2008Q1

REPORT INFORMATION
  Report Type: 
  Country: None (occurrence: None)
  Receive Date: 20080219
  Receipt Date: 20080208
  Transmission Date: 20080703
  Serious: No
  Sender: FDA-Public Use
  Company Number: US-BOEHRINGER INGELHEIM GMBH, GERMANY-2008-BP-01026BP

PATIENT
  Sex: Male

DRUGS (7)
  1. FLOMAX [Suspect]
     Indication: BENIGN PROSTATIC HYPERPLASIA
     Route: 048
     Dates: start: 20080101
  2. FLOMAX [Suspect]
     Indication: POLLAKIURIA
     Route: 048
  3. ALTACE [Concomitant]
     Indication: HYPERTENSION
  4. AMBIEN [Concomitant]
  5. HYDROCHLOROTHIAZIDE [Concomitant]
  6. ZYRTEC-D [Concomitant]
  7. XALATAN [Concomitant]
     Indication: GLAUCOMA

REACTIONS (1)
  - DRUG INEFFECTIVE [None]
